FAERS Safety Report 4285414-5 (Version None)
Quarter: 2004Q1

REPORT INFORMATION
  Report Type: 
  Country: None (occurrence: None)
  Receive Date: 20040202
  Receipt Date: 20040123
  Transmission Date: 20041129
  Serious: Yes (Life-Threatening, Hospitalization)
  Sender: FDA-Public Use
  Company Number: CIP03003024

PATIENT
  Age: 76 Year
  Sex: Female

DRUGS (12)
  1. ACTONEL [Suspect]
     Indication: OSTEOPOROSIS
     Dosage: 2.5 MG, DAILY, ORAL
     Route: 048
     Dates: start: 20030220, end: 20030922
  2. PALUX (ALPROSTADIL) INJECTION [Suspect]
     Indication: SPONDYLOSIS
     Dosage: 2 ML, IV NOS
     Route: 042
     Dates: end: 20030922
  3. CAMPORISIN (SALICYLATE SODIUM) INJECTION [Suspect]
     Indication: MYALGIA
     Dosage: 2 ML, INTRAMUSCULAR
     Route: 030
     Dates: end: 20030922
  4. TARIVID ORAL (OFLOXACIN) [Concomitant]
  5. ONE-ALPHA (ALFACALCIDOL) [Concomitant]
  6. AMINOPHYLLIN [Concomitant]
  7. NEUROTROPIN (ORGAN LYSATE, STANDARDIZED) [Concomitant]
  8. THEO-DUR [Concomitant]
  9. EURODIN(ESTAZOLAM) [Concomitant]
  10. D ALFA (ALFACALCIDOL) [Concomitant]
  11. ELCITONIN (ELCATONIN) [Concomitant]
  12. KETOPROFEN [Concomitant]

REACTIONS (6)
  - ABDOMINAL PAIN [None]
  - ANOREXIA [None]
  - FATIGUE [None]
  - HAEMATOCRIT DECREASED [None]
  - IDIOPATHIC THROMBOCYTOPENIC PURPURA [None]
  - SPONDYLOSIS [None]
